FAERS Safety Report 12771428 (Version 1)
Quarter: 2016Q3

REPORT INFORMATION
  Report Type: Spontaneous
  Country: US (occurrence: US)
  Receive Date: 20160920
  Receipt Date: 20160920
  Transmission Date: 20161109
  Serious: No
  Sender: FDA-Public Use
  Company Number: None

PATIENT
  Age: 56 Year
  Sex: Female

DRUGS (12)
  1. VITAMIN D [Concomitant]
     Active Substance: CHOLECALCIFEROL
  2. DIOVAN [Concomitant]
     Active Substance: VALSARTAN
  3. FLECANIDE [Concomitant]
     Active Substance: FLECAINIDE
  4. XARELTO [Concomitant]
     Active Substance: RIVAROXABAN
  5. IBUPROFEN. [Concomitant]
     Active Substance: IBUPROFEN
  6. DILTIAZEM. [Concomitant]
     Active Substance: DILTIAZEM
  7. REBIF [Suspect]
     Active Substance: INTERFERON BETA-1A
     Indication: MULTIPLE SCLEROSIS
     Route: 058
     Dates: start: 201508
  8. METFORMIN [Concomitant]
     Active Substance: METFORMIN HYDROCHLORIDE
  9. GABAPENTIN. [Concomitant]
     Active Substance: GABAPENTIN
  10. POTASSIUM [Concomitant]
     Active Substance: POTASSIUM
  11. METOPRL/HCTZ [Concomitant]
  12. AVONEX [Concomitant]
     Active Substance: INTERFERON BETA-1A

REACTIONS (1)
  - Influenza like illness [None]

NARRATIVE: CASE EVENT DATE: 201609
